FAERS Safety Report 6649774-X (Version None)
Quarter: 2010Q1

REPORT INFORMATION
  Report Type: 
  Country: None (occurrence: None)
  Receive Date: 20100322
  Receipt Date: 20100316
  Transmission Date: 20100710
  Serious: Yes (Other)
  Sender: FDA-Public Use
  Company Number: WAES0910USA00956

PATIENT
  Age: 76 Year
  Sex: Female

DRUGS (10)
  1. FOSAMAX [Suspect]
     Dosage: 10 MG DAILY PO
     Route: 048
     Dates: start: 20080101
  2. ASPIRIN [Suspect]
     Dosage: 81 MG DAILY PO
     Route: 048
     Dates: start: 20060101, end: 20090805
  3. BLINDED THERAPY UNK [Suspect]
     Indication: CEREBROVASCULAR ACCIDENT PROPHYLAXIS
     Dosage: PO
     Route: 048
     Dates: start: 20080723, end: 20090303
  4. BLINDED THERAPY UNK [Suspect]
     Indication: THROMBOSIS PROPHYLAXIS
     Dosage: PO
     Route: 048
     Dates: start: 20080723, end: 20090303
  5. BLINDED THERAPY UNK [Suspect]
     Indication: CEREBROVASCULAR ACCIDENT PROPHYLAXIS
     Dosage: PO
     Route: 048
     Dates: start: 20090305, end: 20090511
  6. BLINDED THERAPY UNK [Suspect]
     Indication: THROMBOSIS PROPHYLAXIS
     Dosage: PO
     Route: 048
     Dates: start: 20090305, end: 20090511
  7. BLINDED THERAPY UNK [Suspect]
     Indication: CEREBROVASCULAR ACCIDENT PROPHYLAXIS
     Dosage: PO
     Route: 048
     Dates: start: 20090513, end: 20090630
  8. BLINDED THERAPY UNK [Suspect]
     Indication: THROMBOSIS PROPHYLAXIS
     Dosage: PO
     Route: 048
     Dates: start: 20090513, end: 20090630
  9. BLINDED THERAPY UNK [Suspect]
     Indication: CEREBROVASCULAR ACCIDENT PROPHYLAXIS
     Dosage: PO
     Route: 048
     Dates: start: 20090707
  10. BLINDED THERAPY UNK [Suspect]
     Indication: THROMBOSIS PROPHYLAXIS
     Dosage: PO
     Route: 048
     Dates: start: 20090707

REACTIONS (1)
  - NEPHROGENIC ANAEMIA [None]
